FAERS Safety Report 7822715-5 (Version None)
Quarter: 2011Q4

REPORT INFORMATION
  Report Type: 
  Country: None (occurrence: None)
  Receive Date: 20111018
  Receipt Date: 20111007
  Transmission Date: 20120403
  Serious: Yes (Hospitalization)
  Sender: FDA-Public Use
  Company Number: VE-ROCHE-1004760

PATIENT
  Sex: Female

DRUGS (6)
  1. XOLAIR [Suspect]
     Dates: start: 20110816
  2. XOLAIR [Suspect]
     Dates: start: 20110802
  3. METICORTEN [Concomitant]
  4. XOLAIR [Suspect]
     Dates: start: 20110930
  5. XOLAIR [Suspect]
     Indication: ASTHMA
  6. XOLAIR [Suspect]
     Dates: start: 20110911

REACTIONS (5)
  - ASTHMA [None]
  - DYSPNOEA [None]
  - RASH [None]
  - RESPIRATORY ARREST [None]
  - LARYNGEAL OEDEMA [None]
